FAERS Safety Report 5065269-1 (Version None)
Quarter: 2006Q3

REPORT INFORMATION
  Report Type: 
  Country: None (occurrence: None)
  Receive Date: 20060725
  Receipt Date: 20060719
  Transmission Date: 20061208
  Serious: Yes (Other)
  Sender: FDA-Public Use
  Company Number: 200612508BCC

PATIENT
  Age: 74 Year
  Sex: Female
  Weight: 69.4003 kg

DRUGS (5)
  1. NEO-SYNEPHRINE SPRAY (PHENYLEPHRINE HYDROCHLORIDE) [Suspect]
     Indication: HEADACHE
     Dosage: NASAL
     Route: 045
     Dates: start: 20060508
  2. NEO-SYNEPHRINE SPRAY (PHENYLEPHRINE HYDROCHLORIDE) [Suspect]
     Indication: SINUSITIS
     Dosage: NASAL
     Route: 045
     Dates: start: 20060508
  3. RITALIN [Concomitant]
  4. SYNTHROID [Concomitant]
  5. REGLAN [Concomitant]

REACTIONS (11)
  - BURNING SENSATION [None]
  - CAUSTIC INJURY [None]
  - DYSPEPSIA [None]
  - DYSPNOEA [None]
  - EYE IRRITATION [None]
  - INCORRECT DOSE ADMINISTERED [None]
  - MALAISE [None]
  - ORAL INTAKE REDUCED [None]
  - PHARMACEUTICAL PRODUCT COMPLAINT [None]
  - SINUS DISORDER [None]
  - THROAT IRRITATION [None]
